FAERS Safety Report 12708934 (Version 1)
Quarter: 2016Q3

REPORT INFORMATION
  Report Type: Spontaneous
  Country: US (occurrence: US)
  Receive Date: 20160901
  Receipt Date: 20160901
  Transmission Date: 20161109
  Serious: No
  Sender: FDA-Public Use
  Company Number: US-JAZZ-2016-US-008441

PATIENT
  Age: 52 Year
  Sex: Female

DRUGS (12)
  1. XYREM [Suspect]
     Active Substance: SODIUM OXYBATE
     Indication: NARCOLEPSY
     Dosage: 2.25 G, BID
     Route: 048
     Dates: start: 20160503
  2. MAGNESIUM CITRATE. [Concomitant]
     Active Substance: MAGNESIUM CITRATE
  3. ZOMIG [Concomitant]
     Active Substance: ZOLMITRIPTAN
  4. CLINDAMYCIN HCL [Concomitant]
     Active Substance: CLINDAMYCIN HYDROCHLORIDE
  5. HYDROXYZINE HCL [Concomitant]
     Active Substance: HYDROXYZINE HYDROCHLORIDE
  6. NORTRIPTYLINE HCL [Concomitant]
     Active Substance: NORTRIPTYLINE HYDROCHLORIDE
  7. TRAMADOL HCL [Concomitant]
     Active Substance: TRAMADOL HYDROCHLORIDE
  8. ZANTAC [Concomitant]
     Active Substance: RANITIDINE HYDROCHLORIDE
  9. XOLAIR [Concomitant]
     Active Substance: OMALIZUMAB
  10. PROBIOTIC [Concomitant]
     Active Substance: PROBIOTICS NOS
  11. CYCLOSPORINE. [Concomitant]
     Active Substance: CYCLOSPORINE
  12. DHEA [Concomitant]
     Active Substance: PRASTERONE

REACTIONS (2)
  - Supraventricular tachycardia [Unknown]
  - Nightmare [Unknown]

NARRATIVE: CASE EVENT DATE: 20160503
